FAERS Safety Report 5869980-1 (Version None)
Quarter: 2008Q3

REPORT INFORMATION
  Report Type: 
  Country: None (occurrence: None)
  Receive Date: 20080904
  Receipt Date: 20080904
  Transmission Date: 20090109
  Serious: Yes (Hospitalization)
  Sender: FDA-Public Use
  Company Number: PHEH1996US01660

PATIENT
  Sex: Female
  Weight: 67.8 kg

DRUGS (8)
  1. NEORAL [Suspect]
     Route: 048
     Dates: start: 19950626
  2. PREDNISONE TAB [Concomitant]
  3. IMURAN [Concomitant]
  4. LABETALOL HCL [Concomitant]
  5. HYDRALAZINE HCL (HYDRALAZINE HYDROCHLORIDE) [Concomitant]
  6. CARDURA [Concomitant]
  7. HYDROCHLOROTHIAZIDE [Concomitant]
  8. AXID [Concomitant]

REACTIONS (3)
  - PLEURITIC PAIN [None]
  - PYREXIA [None]
  - VIRAL INFECTION [None]
